FAERS Safety Report 9107408 (Version 2)
Quarter: 2013Q2

REPORT INFORMATION
  Report Type: Spontaneous
  Country: US (occurrence: US)
  Receive Date: 20130221
  Receipt Date: 20130405
  Transmission Date: 20140414
  Serious: Yes (Death, Hospitalization)
  Sender: FDA-Public Use
  Company Number: US-AMGEN-USASP2013010477

PATIENT
  Age: 42 Year
  Sex: Female
  Weight: 48.98 kg

DRUGS (3)
  1. NEULASTA [Suspect]
     Indication: NEUTROPENIA
     Dosage: 6 MG, Q3WK
     Route: 058
     Dates: start: 20120621, end: 20120913
  2. HERCEPTIN [Concomitant]
     Indication: BREAST CANCER
     Dosage: 300 MG, Q3WK
     Route: 042
  3. IXEMPRA [Concomitant]
     Indication: BREAST CANCER
     Dosage: 56 MG, Q3WK
     Route: 042

REACTIONS (1)
  - Metastatic neoplasm [Fatal]
